FAERS Safety Report 10153036 (Version 2)
Quarter: 2014Q3

REPORT INFORMATION
  Report Type: Report from Study
  Country: US (occurrence: US)
  Receive Date: 20140505
  Receipt Date: 20140731
  Transmission Date: 20150326
  Serious: Yes (Death, Hospitalization, Other)
  Sender: FDA-Public Use
  Company Number: US-GILEAD-2014-0101095

PATIENT
  Age: 32 Year
  Sex: Male

DRUGS (11)
  1. SERTRALINE [Concomitant]
     Active Substance: SERTRALINE HYDROCHLORIDE
  2. DORNASE ALFA [Concomitant]
     Active Substance: DORNASE ALFA
     Dosage: 2.5 MG, UNK
     Route: 055
     Dates: end: 20140324
  3. INSULIN [Concomitant]
     Active Substance: INSULIN NOS
     Dosage: UNK
     Dates: end: 20140324
  4. ATROVENT [Concomitant]
     Active Substance: IPRATROPIUM BROMIDE
     Dosage: 0.5 MG, TID
     Route: 055
  5. AZTREONAM LYSINE [Suspect]
     Active Substance: AZTREONAM LYSINE
     Dosage: UNK
     Route: 055
     Dates: start: 20140404, end: 20140407
  6. SUBOXONE [Concomitant]
     Active Substance: BUPRENORPHINE HYDROCHLORIDE\NALOXONE HYDROCHLORIDE
  7. AZTREONAM. [Concomitant]
     Active Substance: AZTREONAM
     Dosage: UNK
     Route: 042
     Dates: start: 201402
  8. ALBUTEROL                          /00139501/ [Concomitant]
     Active Substance: ALBUTEROL
     Route: 055
  9. AZTREONAM LYSINE [Suspect]
     Active Substance: AZTREONAM LYSINE
     Indication: CYSTIC FIBROSIS
     Dosage: 75 MG, UNK
     Route: 055
     Dates: start: 20100409, end: 20140131
  10. AMBIEN [Concomitant]
     Active Substance: ZOLPIDEM TARTRATE
  11. PANTOPRAZOLE [Concomitant]
     Active Substance: PANTOPRAZOLE SODIUM
     Dosage: 40 MG, QD
     Route: 042
     Dates: end: 20140324

REACTIONS (13)
  - Bacteraemia [Fatal]
  - Hypotension [Unknown]
  - Haemoptysis [Unknown]
  - Influenza [Unknown]
  - Respiratory distress [Unknown]
  - Pyrexia [Unknown]
  - Confusional state [Unknown]
  - Myopathy [Unknown]
  - Asthenia [Unknown]
  - Back pain [Unknown]
  - Multiple-drug resistance [Unknown]
  - Bacterial sepsis [Fatal]
  - Chest pain [Unknown]

NARRATIVE: CASE EVENT DATE: 20140323
